FAERS Safety Report 5679651-2 (Version None)
Quarter: 2008Q1

REPORT INFORMATION
  Report Type: 
  Country: None (occurrence: None)
  Receive Date: 20080325
  Receipt Date: 20080319
  Transmission Date: 20080703
  Serious: Yes (Other)
  Sender: FDA-Public Use
  Company Number: US-ABBOTT-08P-163-0443402-00

PATIENT
  Sex: Male

DRUGS (5)
  1. DEPAKOTE [Suspect]
     Indication: DRUG USE FOR UNKNOWN INDICATION
  2. PREGABALIN [Interacting]
     Indication: DRUG USE FOR UNKNOWN INDICATION
  3. TRAZODONE HCL [Interacting]
     Indication: DRUG USE FOR UNKNOWN INDICATION
  4. FENTANYL [Interacting]
     Indication: DRUG USE FOR UNKNOWN INDICATION
  5. ANTIHYPERTENSIVES [Interacting]
     Indication: DRUG USE FOR UNKNOWN INDICATION

REACTIONS (6)
  - AGEUSIA [None]
  - DRUG INTERACTION [None]
  - DYSGEUSIA [None]
  - NIGHTMARE [None]
  - PARANOIA [None]
  - VISION BLURRED [None]
